FAERS Safety Report 8621158 (Version 2)
Quarter: 2012Q4

REPORT INFORMATION
  Report Type: 
  Country: US (occurrence: US)
  Receive Date: 20120619
  Receipt Date: 20120918
  Transmission Date: 20130627
  Serious: No
  Sender: FDA-Public Use
  Company Number: US-PFIZER INC-2012143587

PATIENT
  Age: 29 Year
  Sex: Male

DRUGS (2)
  1. LYRICA [Suspect]
     Dosage: 50 mg, 1 tab, 3x/day
  2. ZOLOFT [Suspect]
     Dosage: 100 mg, 1.5 tabs daily

REACTIONS (2)
  - Mental disorder [Unknown]
  - Activities of daily living impaired [Unknown]
